FAERS Safety Report 5660147-9 (Version None)
Quarter: 2008Q1

REPORT INFORMATION
  Report Type: 
  Country: None (occurrence: None)
  Receive Date: 20080306
  Receipt Date: 20080222
  Transmission Date: 20080703
  Serious: Yes (Hospitalization)
  Sender: FDA-Public Use
  Company Number: 2008BI004770

PATIENT
  Age: 29 Year
  Sex: Male

DRUGS (1)
  1. TYSABRI [Suspect]
     Indication: MULTIPLE SCLEROSIS
     Dosage: 300 MG;QM;IV
     Route: 042
     Dates: start: 20070913

REACTIONS (4)
  - DECUBITUS ULCER [None]
  - DRUG PRESCRIBING ERROR [None]
  - OPPORTUNISTIC INFECTION [None]
  - URINARY TRACT INFECTION [None]
